FAERS Safety Report 25448673 (Version 1)
Quarter: 2025Q2

REPORT INFORMATION
  Report Type: Spontaneous
  Country: US (occurrence: US)
  Receive Date: 20250618
  Receipt Date: 20250618
  Transmission Date: 20250717
  Serious: Yes (Other)
  Sender: AMGEN
  Company Number: US-AMGEN-USASP2025116960

PATIENT

DRUGS (9)
  1. ADALIMUMAB [Suspect]
     Active Substance: ADALIMUMAB
     Indication: Polychondritis
     Route: 065
  2. ENBREL [Suspect]
     Active Substance: ETANERCEPT
     Indication: Polychondritis
     Route: 065
  3. RITUXIMAB [Suspect]
     Active Substance: RITUXIMAB
     Indication: Polychondritis
     Route: 065
  4. INFLIXIMAB [Suspect]
     Active Substance: INFLIXIMAB
     Indication: Polychondritis
     Route: 065
  5. CERTOLIZUMAB [Concomitant]
     Active Substance: CERTOLIZUMAB
  6. GOLIMUMAB [Concomitant]
     Active Substance: GOLIMUMAB
  7. SECUKINUMAB [Concomitant]
     Active Substance: SECUKINUMAB
  8. TOCILIZUMAB [Concomitant]
     Active Substance: TOCILIZUMAB
  9. USTEKINUMAB [Concomitant]
     Active Substance: USTEKINUMAB

REACTIONS (2)
  - Multiple organ dysfunction syndrome [Unknown]
  - Off label use [Unknown]
